FAERS Safety Report 23960658 (Version 1)
Quarter: 2024Q2

REPORT INFORMATION
  Report Type: Other
  Country: JP (occurrence: None)
  Receive Date: 20240611
  Receipt Date: 20240611
  Transmission Date: 20240716
  Serious: Yes (Other)
  Sender: FDA-Public Use
  Company Number: JP-ROCHE-3574417

PATIENT

DRUGS (3)
  1. ATEZOLIZUMAB [Suspect]
     Active Substance: ATEZOLIZUMAB
     Indication: Non-small cell lung cancer
     Route: 065
  2. NIVOLUMAB [Suspect]
     Active Substance: NIVOLUMAB
     Indication: Non-small cell lung cancer
     Route: 065
  3. PEMBROLIZUMAB [Suspect]
     Active Substance: PEMBROLIZUMAB
     Indication: Non-small cell lung cancer
     Route: 065

REACTIONS (12)
  - Skin disorder [Unknown]
  - Traumatic lung injury [Unknown]
  - Diarrhoea [Unknown]
  - Colitis [Unknown]
  - Renal impairment [Unknown]
  - Type 1 diabetes mellitus [Unknown]
  - Thrombosis [Unknown]
  - Autoimmune disorder [Unknown]
  - Thyroid disorder [Unknown]
  - Musculoskeletal disorder [Unknown]
  - Adrenal insufficiency [Unknown]
  - Neuropathy peripheral [Unknown]
